FAERS Safety Report 18589691 (Version 2)
Quarter: 2020Q4

REPORT INFORMATION
  Report Type: Report from Study
  Country: CN (occurrence: CN)
  Receive Date: 20201208
  Receipt Date: 20201230
  Transmission Date: 20210114
  Serious: Yes (Hospitalization)
  Sender: FDA-Public Use
  Company Number: CN-AMGEN-CHNCT2020194110

PATIENT
  Age: 60 Year
  Sex: Male
  Weight: 66 kg

DRUGS (7)
  1. PACLITAXEL. [Concomitant]
     Active Substance: PACLITAXEL
     Indication: METASTASES TO BONE
  2. DENOSUMAB [Suspect]
     Active Substance: DENOSUMAB
     Indication: LUNG ADENOCARCINOMA
     Dosage: 1.7 MILLILITER, QD
     Route: 058
     Dates: start: 20200828, end: 20200828
  3. DENOSUMAB [Suspect]
     Active Substance: DENOSUMAB
     Dosage: 1.7 MILLILITER, QD
     Route: 058
     Dates: start: 20201120, end: 20201120
  4. PACLITAXEL. [Concomitant]
     Active Substance: PACLITAXEL
     Indication: LUNG ADENOCARCINOMA
     Dosage: 0.4 GRAM
     Route: 042
     Dates: start: 20201116
  5. DENOSUMAB [Suspect]
     Active Substance: DENOSUMAB
     Dosage: 1.7 MILLILITER, QD
     Route: 058
     Dates: start: 20201022, end: 20201022
  6. DENOSUMAB [Suspect]
     Active Substance: DENOSUMAB
     Indication: METASTASES TO BONE
     Dosage: 1.7 MILLILITER, QD
     Route: 058
     Dates: start: 20200928, end: 20200928
  7. TAGRISSO [Concomitant]
     Active Substance: OSIMERTINIB
     Indication: LUNG ADENOCARCINOMA
     Dosage: 80 MILLIGRAM, QD
     Route: 048
     Dates: start: 201903

REACTIONS (1)
  - Vomiting [Recovered/Resolved]

NARRATIVE: CASE EVENT DATE: 20201109
